FAERS Safety Report 10936955 (Version 1)
Quarter: 2015Q1

REPORT INFORMATION
  Report Type: Spontaneous
  Country: US (occurrence: None)
  Receive Date: 20150212
  Receipt Date: 20150212
  Transmission Date: 20150721
  Serious: No
  Sender: FDA-Public Use
  Company Number: TPA2011A04427

PATIENT
  Age: 64 Year
  Sex: Male
  Weight: 122.47 kg

DRUGS (8)
  1. UROXATRAL (ALFUZOSIN HYDROCHLORIDE) [Concomitant]
  2. ULORIC [Suspect]
     Active Substance: FEBUXOSTAT
     Indication: HYPERURICAEMIA
     Route: 048
     Dates: start: 20110714, end: 20110719
  3. BENICAR/HCT (HYDROCHLOROTHIAZIDE, OLMESARTAN MEDOXOMIL) [Concomitant]
  4. COSOPT (TIMOLOL MALEATE, DORZOLAMIDE HYDROCHLORIDE) [Concomitant]
  5. ULORIC [Suspect]
     Active Substance: FEBUXOSTAT
     Indication: GOUT
     Route: 048
     Dates: start: 20110714, end: 20110719
  6. DILTIAZEM (DILTIAZEM) [Concomitant]
  7. ALPHAGAN (BRIMONIDINE) [Concomitant]
  8. TRAVATAN (TRAVOPROST) [Concomitant]

REACTIONS (2)
  - Pain in extremity [None]
  - Oedema peripheral [None]

NARRATIVE: CASE EVENT DATE: 201107
